FAERS Safety Report 8223085-3 (Version None)
Quarter: 2012Q1

REPORT INFORMATION
  Report Type: 
  Country: None (occurrence: None)
  Receive Date: 20120321
  Receipt Date: 20120315
  Transmission Date: 20120608
  Serious: No
  Sender: FDA-Public Use
  Company Number: US-BIOGENIDEC-2010BI035857

PATIENT
  Sex: Female

DRUGS (1)
  1. TYSABRI [Suspect]
     Indication: MULTIPLE SCLEROSIS
     Route: 042
     Dates: start: 20081024, end: 20111001

REACTIONS (5)
  - URINARY TRACT INFECTION [None]
  - FUNGAL INFECTION [None]
  - SINUSITIS [None]
  - INFECTION [None]
  - MULTIPLE SCLEROSIS RELAPSE [None]
